FAERS Safety Report 5383089-5 (Version None)
Quarter: 2007Q2

REPORT INFORMATION
  Report Type: 
  Country: None (occurrence: None)
  Receive Date: 20070629
  Receipt Date: 20070123
  Transmission Date: 20071010
  Serious: Yes (Hospitalization)
  Sender: FDA-Public Use
  Company Number: US200611000281

PATIENT
  Age: 51 Year
  Sex: Male

DRUGS (4)
  1. HUMALOG [Suspect]
     Indication: DIABETES MELLITUS
     Dates: start: 19910101
  2. LANTUS [Concomitant]
  3. CRESTOR [Concomitant]
  4. AMBIEN [Concomitant]

REACTIONS (10)
  - BLOOD CHOLESTEROL [None]
  - BLOOD CREATINE ABNORMAL [None]
  - BLOOD UREA ABNORMAL [None]
  - CATARACT [None]
  - DRUG INEFFECTIVE [None]
  - HYPERTENSION [None]
  - MUSCLE SPASMS [None]
  - NEUROPATHY PERIPHERAL [None]
  - RENAL DISORDER [None]
  - VASCULAR BYPASS GRAFT [None]
